FAERS Safety Report 11159326 (Version 1)
Quarter: 2015Q2

REPORT INFORMATION
  Report Type: Spontaneous
  Country: US (occurrence: None)
  Receive Date: 20150602
  Receipt Date: 20150602
  Transmission Date: 20150821
  Serious: Yes (Death, Life-Threatening, Hospitalization)
  Sender: FDA-Public Use
  Company Number: None

PATIENT
  Age: 57 Year
  Sex: Female
  Weight: 115.67 kg

DRUGS (1)
  1. METHIMAZOLE. [Suspect]
     Active Substance: METHIMAZOLE
     Indication: BASEDOW^S DISEASE
     Dosage: ONCE DAILY TAKEN BY MOUTH
     Route: 048
     Dates: start: 20140820, end: 20140824

REACTIONS (6)
  - Headache [None]
  - Acute promyelocytic leukaemia [None]
  - Brain oedema [None]
  - Contusion [None]
  - Brain death [None]
  - Cerebrovascular accident [None]

NARRATIVE: CASE EVENT DATE: 20140830
